FAERS Safety Report 6662939-6 (Version None)
Quarter: 2010Q2

REPORT INFORMATION
  Report Type: 
  Country: None (occurrence: None)
  Receive Date: 20100401
  Receipt Date: 20100322
  Transmission Date: 20101027
  Serious: Yes (Other)
  Sender: FDA-Public Use
  Company Number: US-WYE-H14259110

PATIENT
  Age: 51 Year
  Sex: Female
  Weight: 63.56 kg

DRUGS (3)
  1. ROBITUSSIN COUGH AND COLD CF [Suspect]
     Indication: COUGH
     Dosage: 2 TEASPOONS
     Route: 048
     Dates: start: 20100301, end: 20100301
  2. ROBITUSSIN COUGH AND COLD CF [Suspect]
     Indication: NASOPHARYNGITIS
  3. ROBITUSSIN COUGH AND COLD CF [Suspect]
     Indication: INFLUENZA

REACTIONS (2)
  - ATELECTASIS [None]
  - PNEUMONITIS [None]
